FAERS Safety Report 16302486 (Version 1)
Quarter: 2019Q2

REPORT INFORMATION
  Report Type: Spontaneous
  Country: AU (occurrence: AU)
  Receive Date: 20190513
  Receipt Date: 20190513
  Transmission Date: 20190711
  Serious: Yes (Hospitalization, Other)
  Sender: FDA-Public Use
  Company Number: AU-BRISTOL-MYERS SQUIBB COMPANY-BMS-2019-015317

PATIENT
  Age: 56 Year
  Sex: Female

DRUGS (2)
  1. OPDIVO [Suspect]
     Active Substance: NIVOLUMAB
     Indication: UVEAL MELANOMA
     Dosage: 1 MILLIGRAM/KILOGRAM
     Route: 065
     Dates: start: 20181008
  2. YERVOY [Suspect]
     Active Substance: IPILIMUMAB
     Indication: UVEAL MELANOMA
     Dosage: 3 MILLIGRAM/KILOGRAM
     Route: 065
     Dates: start: 20181008

REACTIONS (7)
  - Hepatitis [Unknown]
  - Hyperthyroidism [Unknown]
  - Headache [Unknown]
  - Colitis [Unknown]
  - Myopathy [Unknown]
  - Rectal haemorrhage [Unknown]
  - Bursitis [Unknown]

NARRATIVE: CASE EVENT DATE: 20181113
